FAERS Safety Report 16345091 (Version 1)
Quarter: 2019Q2

REPORT INFORMATION
  Report Type: Spontaneous
  Country: CA (occurrence: CA)
  Receive Date: 20190523
  Receipt Date: 20190523
  Transmission Date: 20190711
  Serious: Yes (Other)
  Sender: FDA-Public Use
  Company Number: CA-SA-2019SA139132

PATIENT
  Age: 57 Year
  Sex: Female

DRUGS (1)
  1. KEVZARA [Suspect]
     Active Substance: SARILUMAB
     Indication: ARTHRITIS
     Dosage: 200 MG, QOW; SOLUTION SUBCUTANEOUS
     Route: 058

REACTIONS (4)
  - Fatigue [Unknown]
  - Skin exfoliation [Unknown]
  - Blister [Unknown]
  - Wheezing [Unknown]
